FAERS Safety Report 8197318-6 (Version None)
Quarter: 2012Q1

REPORT INFORMATION
  Report Type: 
  Country: None (occurrence: None)
  Receive Date: 20120309
  Receipt Date: 20120229
  Transmission Date: 20120608
  Serious: Yes (Death, Hospitalization)
  Sender: FDA-Public Use
  Company Number: GB-SANOFI-AVENTIS-2012SA013753

PATIENT
  Age: 63 Year
  Sex: Female
  Weight: 68.8 kg

DRUGS (6)
  1. LEFLUNOMIDE [Suspect]
     Indication: RHEUMATOID ARTHRITIS
     Route: 065
     Dates: start: 20110901, end: 20111212
  2. LOPERAMIDE HCL [Concomitant]
  3. SULFASALAZINE [Concomitant]
     Indication: RHEUMATOID ARTHRITIS
     Dates: start: 20100101
  4. LANSOPRAZOLE [Concomitant]
  5. BECLOMETHASONE DIPROPIONATE [Concomitant]
  6. METHOTREXATE [Concomitant]
     Indication: RHEUMATOID ARTHRITIS
     Dates: start: 20100101, end: 20110801

REACTIONS (8)
  - PULMONARY FIBROSIS [None]
  - PNEUMOCYSTIS JIROVECI PNEUMONIA [None]
  - RESPIRATORY TRACT INFECTION [None]
  - BACTERIAL INFECTION [None]
  - LUNG DISORDER [None]
  - CONDITION AGGRAVATED [None]
  - PULMONARY EMBOLISM [None]
  - DYSPNOEA [None]
